FAERS Safety Report 8905322 (Version 4)
Quarter: 2012Q4

REPORT INFORMATION
  Report Type: 
  Country: US (occurrence: US)
  Receive Date: 20121113
  Receipt Date: 20121221
  Transmission Date: 20130627
  Serious: Yes (Other)
  Sender: FDA-Public Use
  Company Number: US-SANOFI-AVENTIS-2012SA081204

PATIENT
  Age: 31 Year
  Sex: Female
  Weight: 72.57 kg

DRUGS (3)
  1. APIDRA [Suspect]
     Indication: TYPE 1 DIABETES MELLITUS
     Route: 058
     Dates: start: 201208, end: 20121017
  2. APIDRA [Suspect]
     Indication: TYPE 1 DIABETES MELLITUS
     Route: 058
     Dates: start: 201208, end: 20121017
  3. SYNTHROID [Concomitant]
     Dates: start: 200912

REACTIONS (2)
  - Injection site abscess [Recovered/Resolved]
  - Hyperglycaemia [Unknown]
